FAERS Safety Report 25642045 (Version 1)
Quarter: 2025Q3

REPORT INFORMATION
  Report Type: Report from Study
  Country: EU (occurrence: EU)
  Receive Date: 20250805
  Receipt Date: 20250805
  Transmission Date: 20251021
  Serious: Yes (Hospitalization)
  Sender: ABBVIE
  Company Number: EU-ABBVIE-6397749

PATIENT
  Age: 49 Year
  Sex: Female

DRUGS (2)
  1. RINVOQ [Suspect]
     Active Substance: UPADACITINIB
     Indication: Ankylosing spondylitis
     Route: 048
     Dates: start: 20240221, end: 202506
  2. RINVOQ [Suspect]
     Active Substance: UPADACITINIB
     Indication: Ankylosing spondylitis
     Dosage: DOSE START DATE- JUN 2025.
     Route: 048
     Dates: end: 202507

REACTIONS (6)
  - Respiratory disorder [Recovered/Resolved]
  - Otitis media [Recovered/Resolved]
  - Therapy cessation [Not Recovered/Not Resolved]
  - Herpes zoster [Recovered/Resolved]
  - Angina pectoris [Recovered/Resolved]
  - Bronchitis [Recovered/Resolved]

NARRATIVE: CASE EVENT DATE: 20250201
